FAERS Safety Report 9960172 (Version 2)
Quarter: 2014Q1

REPORT INFORMATION
  Report Type: Spontaneous
  Country: PR (occurrence: PR)
  Receive Date: 20140305
  Receipt Date: 20140305
  Transmission Date: 20141002
  Serious: No
  Sender: FDA-Public Use
  Company Number: PR-ABBVIE-13P-131-1048887-00

PATIENT
  Age: 45 Year
  Sex: Female
  Weight: 131.66 kg

DRUGS (8)
  1. HUMIRA [Suspect]
     Indication: PSORIATIC ARTHROPATHY
     Route: 058
     Dates: start: 201302
  2. CYMBALTA [Concomitant]
     Indication: MAJOR DEPRESSION
     Route: 048
  3. CLONAZEPAM [Concomitant]
     Indication: INSOMNIA
     Route: 048
  4. FOLIC ACID [Concomitant]
     Indication: SUPPLEMENTATION THERAPY
     Route: 048
  5. PREDNISONE [Concomitant]
     Indication: ARTHRITIS
     Route: 048
  6. MELOXICAM [Concomitant]
     Indication: PAIN
     Route: 048
  7. METHOTREXATE [Concomitant]
     Indication: PSORIASIS
     Route: 048
  8. EXCEDRIN [Concomitant]
     Indication: MIGRAINE
     Route: 048

REACTIONS (3)
  - Injection site pain [Recovered/Resolved]
  - Injection site pain [Recovered/Resolved]
  - Injection site pain [Recovered/Resolved]
